FAERS Safety Report 13507435 (Version 3)
Quarter: 2017Q3

REPORT INFORMATION
  Report Type: Spontaneous
  Country: IT (occurrence: IT)
  Receive Date: 20170503
  Receipt Date: 20170808
  Transmission Date: 20171127
  Serious: Yes (Other)
  Sender: FDA-Public Use
  Company Number: IT-ACCORD-050823

PATIENT
  Age: 41 Year
  Sex: Female
  Weight: 64 kg

DRUGS (6)
  1. LEVOFOLINIC ACID [Suspect]
     Active Substance: LEVOLEUCOVORIN
     Indication: ADENOCARCINOMA OF COLON
     Dosage: FOLFOXIRI + BEVACIZUMAB CYCLE 2
     Route: 042
     Dates: start: 20160805
  2. IRINOTECAN [Suspect]
     Active Substance: IRINOTECAN
     Indication: ADENOCARCINOMA OF COLON
     Dosage: FOLFOXIRI + BEVACIZUMAB CYCLE 2
     Route: 042
     Dates: start: 20160805
  3. CETUXIMAB. [Suspect]
     Active Substance: CETUXIMAB
     Indication: PRODUCT USED FOR UNKNOWN INDICATION
  4. OXALIPLATIN. [Suspect]
     Active Substance: OXALIPLATIN
     Indication: ADENOCARCINOMA OF COLON
     Dosage: LAST DOSE ADMINISTERED ON 15-SEP-2016 (42 DAYS).
     Route: 042
     Dates: start: 20160805
  5. FLUOROURACIL. [Suspect]
     Active Substance: FLUOROURACIL
     Indication: ADENOCARCINOMA OF COLON
     Dosage: LAST DOSE ON 12-FEB-2017(192 DAY).ALSO 640 MG FROM 03-OCT-2016 TO 12-JAN-2017?FOLFOXIRI,BEVACIZU CY
     Route: 041
     Dates: start: 20160805
  6. AVASTIN [Suspect]
     Active Substance: BEVACIZUMAB
     Indication: ADENOCARCINOMA OF COLON
     Dosage: FOLFOXIRI + BEVACIZUMAB CYCLE 2
     Route: 042
     Dates: start: 20160805

REACTIONS (10)
  - Presyncope [Recovering/Resolving]
  - Nausea [Recovering/Resolving]
  - Pain in extremity [Recovering/Resolving]
  - Diarrhoea [Recovering/Resolving]
  - Neutropenia [Unknown]
  - Thrombocytopenia [Recovering/Resolving]
  - Myalgia [Recovering/Resolving]
  - Infusion related reaction [Recovering/Resolving]
  - Neuropathy peripheral [Recovering/Resolving]
  - Hypertensive crisis [Recovering/Resolving]

NARRATIVE: CASE EVENT DATE: 20160807
